FAERS Safety Report 6044712-5 (Version None)
Quarter: 2009Q1

REPORT INFORMATION
  Report Type: 
  Country: None (occurrence: None)
  Receive Date: 20090120
  Receipt Date: 20090109
  Transmission Date: 20090719
  Serious: Yes (Hospitalization)
  Sender: FDA-Public Use
  Company Number: DE-WYE-H07693809

PATIENT
  Age: 70 Year
  Sex: Male
  Weight: 91.5 kg

DRUGS (15)
  1. PANTOZOL [Suspect]
     Indication: HELICOBACTER GASTRITIS
     Route: 048
  2. XIPAMIDE [Suspect]
     Indication: HYPERTENSION
     Route: 048
  3. ACETOLYT [Suspect]
     Indication: ACIDOSIS
     Route: 048
     Dates: end: 20080728
  4. ALLOPURINOL [Suspect]
     Indication: HYPERURICAEMIA
     Route: 048
  5. ACETYLSALICYLIC ACID SRT [Suspect]
     Indication: PROPHYLAXIS
     Dosage: UNSPECIFIED
     Route: 048
     Dates: start: 20000101
  6. CARVEDILOL [Suspect]
     Indication: HYPERTENSION
     Route: 048
  7. DIGITOXIN TAB [Suspect]
     Indication: CARDIAC FAILURE
     Route: 048
     Dates: start: 20080625, end: 20080720
  8. DIOVAN [Suspect]
     Indication: HYPERTENSION
     Route: 048
  9. EINSALPHA [Suspect]
     Indication: HYPERPARATHYROIDISM
     Dosage: 0.25 MCG DAILY
     Route: 048
     Dates: start: 20080520
  10. FLUVASTATIN [Suspect]
     Indication: HYPERCHOLESTEROLAEMIA
     Route: 048
  11. PLAVIX [Suspect]
     Indication: PROPHYLAXIS
     Route: 048
     Dates: start: 20060401, end: 20080720
  12. TOREM [Suspect]
     Indication: HYPERTENSION
     Route: 048
  13. NEORECORMON [Concomitant]
     Indication: ANAEMIA
     Dosage: UNSPECIFIED
     Route: 058
  14. MOXONIDINE [Concomitant]
     Indication: HYPERTENSION
     Dosage: UNSPECIFIED
     Route: 048
  15. EBRANTIL [Suspect]
     Indication: HYPERTENSION
     Route: 048

REACTIONS (6)
  - ANAEMIA [None]
  - CARDIOACTIVE DRUG LEVEL INCREASED [None]
  - GENERAL PHYSICAL CONDITION ABNORMAL [None]
  - MALAISE [None]
  - NAUSEA [None]
  - RENAL IMPAIRMENT [None]
